FAERS Safety Report 9259241 (Version 2)
Quarter: 2013Q2

REPORT INFORMATION
  Report Type: Spontaneous
  Country: FR (occurrence: FR)
  Receive Date: 20130426
  Receipt Date: 20130528
  Transmission Date: 20140414
  Serious: Yes (Death, Life-Threatening, Hospitalization, Other)
  Sender: FDA-Public Use
  Company Number: FR-ASTRAZENECA-2013SE28237

PATIENT
  Age: 14324 Day
  Sex: Female

DRUGS (24)
  1. INEXIUM [Suspect]
     Indication: GASTROOESOPHAGEAL REFLUX DISEASE
     Route: 048
     Dates: start: 20130318, end: 20130401
  2. CELLCEPT [Suspect]
     Indication: GRAFT VERSUS HOST DISEASE
     Route: 042
     Dates: start: 20130320
  3. TAZOCILLINE [Suspect]
     Indication: CYSTITIS ESCHERICHIA
     Route: 042
     Dates: start: 20130212, end: 20130403
  4. SOLIRIS [Suspect]
     Indication: HAEMOLYTIC URAEMIC SYNDROME
     Dates: start: 20130327
  5. CYMEVAN [Suspect]
     Indication: CYTOMEGALOVIRUS INFECTION
     Route: 042
     Dates: start: 20130330
  6. NOXAFIL [Suspect]
     Indication: GASTROINTESTINAL CANDIDIASIS
     Route: 048
     Dates: start: 20130314, end: 20130328
  7. CANCIDAS [Suspect]
     Indication: GASTROINTESTINAL CANDIDIASIS
     Dates: start: 20130328
  8. FOSCAVIR [Suspect]
     Indication: CYTOMEGALOVIRUS INFECTION
     Dates: start: 20130319, end: 20130329
  9. ZELITREX [Concomitant]
     Route: 048
  10. CICLOSPORINE [Concomitant]
     Dates: end: 20130320
  11. SOLUMEDROL [Concomitant]
     Dosage: 80 MG IN THE MORNING AND 40 MG IN THE EVENING
     Route: 048
  12. HNF [Concomitant]
     Route: 048
  13. DELURSAN [Concomitant]
  14. DEFIBROTIDE [Concomitant]
  15. LASILIX [Concomitant]
  16. SPASFON [Concomitant]
  17. MOPRAL [Concomitant]
  18. SEROPRAM [Concomitant]
  19. HALDOL [Concomitant]
  20. STILNOX [Concomitant]
  21. CACIT D3 [Concomitant]
  22. PROCTOLOG [Concomitant]
  23. HEPARINE [Concomitant]
  24. COLECALCIFEROL [Concomitant]

REACTIONS (13)
  - Bone marrow failure [Fatal]
  - Haemolytic uraemic syndrome [Unknown]
  - Cerebral haemorrhage [Unknown]
  - Venoocclusive disease [Unknown]
  - Graft versus host disease [Unknown]
  - Cytomegalovirus infection [Unknown]
  - Leukaemia recurrent [Unknown]
  - Sepsis [Unknown]
  - Bacterial pyelonephritis [Unknown]
  - Coagulopathy [Unknown]
  - Renal failure [Unknown]
  - Toxic epidermal necrolysis [Unknown]
  - Rash [Unknown]
